FAERS Safety Report 9142786 (Version 2)
Quarter: 2014Q1

REPORT INFORMATION
  Report Type: Spontaneous
  Country: IT (occurrence: IT)
  Receive Date: 20130306
  Receipt Date: 20140128
  Transmission Date: 20141002
  Serious: Yes (Other)
  Sender: FDA-Public Use
  Company Number: IT-BRISTOL-MYERS SQUIBB COMPANY-17424078

PATIENT
  Age: 47 Year
  Sex: Male

DRUGS (7)
  1. ERBITUX [Suspect]
     Indication: LIP AND/OR ORAL CAVITY CANCER
     Dates: start: 20130117
  2. CISPLATINE [Suspect]
     Indication: LIP AND/OR ORAL CAVITY CANCER
     Route: 042
     Dates: start: 20130117
  3. RANIDIL [Concomitant]
     Indication: LIP AND/OR ORAL CAVITY CANCER
     Dosage: 1DF:50MG/ML
     Route: 042
     Dates: start: 20130117, end: 20130117
  4. ONDANSETRON [Concomitant]
     Indication: LIP AND/OR ORAL CAVITY CANCER
     Route: 042
     Dates: start: 20130117, end: 20130117
  5. GLUTATHIONE [Concomitant]
     Indication: LIP AND/OR ORAL CAVITY CANCER
     Route: 042
     Dates: start: 20130117, end: 20130117
  6. FUROSEMIDE [Concomitant]
  7. SOLDESAM [Concomitant]
     Indication: LIP AND/OR ORAL CAVITY CANCER
     Dosage: 8MG/2ML
     Dates: start: 20130117, end: 20130117

REACTIONS (4)
  - Hyperbilirubinaemia [Unknown]
  - Thrombocytopenia [Unknown]
  - Transaminases increased [Unknown]
  - Hypocalcaemia [Unknown]
